FAERS Safety Report 9499406 (Version 1)
Quarter: 2013Q3

REPORT INFORMATION
  Report Type: Spontaneous
  Country: JP (occurrence: None)
  Receive Date: 20130903
  Receipt Date: 20130903
  Transmission Date: 20140515
  Serious: Yes (Life-Threatening)
  Sender: FDA-Public Use
  Company Number: TPC-426

PATIENT
  Sex: 0

DRUGS (1)
  1. LANSAP [Suspect]
     Indication: HELICOBACTER INFECTION
     Route: 048

REACTIONS (1)
  - Hepatitis fulminant [None]
